FAERS Safety Report 5833378-2 (Version None)
Quarter: 2008Q3

REPORT INFORMATION
  Report Type: 
  Country: None (occurrence: None)
  Receive Date: 20080804
  Receipt Date: 20080804
  Transmission Date: 20090109
  Serious: Yes (Hospitalization, Disabling, Congenital Anomaly, Other)
  Sender: FDA-Public Use
  Company Number: None

PATIENT
  Age: 58 Year
  Sex: Female
  Weight: 60.782 kg

DRUGS (3)
  1. CIPRO [Suspect]
     Indication: RENAL HAEMORRHAGE
     Dosage: 500 00 250 00 FROM 1999. TILL 204-5
     Dates: start: 19990101
  2. LEVAQUIN [Suspect]
     Dosage: 500 00 24. HR. IV
     Route: 042
  3. BAYCOL [Concomitant]

REACTIONS (1)
  - NO ADVERSE EVENT [None]
